FAERS Safety Report 10420360 (Version 1)
Quarter: 2014Q3

REPORT INFORMATION
  Report Type: Spontaneous
  Country: CA (occurrence: None)
  Receive Date: 20140815
  Receipt Date: 20140815
  Transmission Date: 20150326
  Serious: Yes (Hospitalization, Other)
  Sender: FDA-Public Use
  Company Number: CA-145559

PATIENT
  Age: 29 Year
  Sex: Female

DRUGS (1)
  1. WINRHO SDF LIQUID [Suspect]
     Active Substance: HUMAN RHO(D) IMMUNE GLOBULIN
     Indication: PROPHYLAXIS AGAINST RH ISOIMMUNISATION
     Route: 030
     Dates: start: 20140629, end: 20140629

REACTIONS (3)
  - Maternal exposure during pregnancy [None]
  - Abortion incomplete [None]
  - Expired product administered [None]

NARRATIVE: CASE EVENT DATE: 20140629
